FAERS Safety Report 25262824 (Version 1)
Quarter: 2025Q2

REPORT INFORMATION
  Report Type: Spontaneous
  Country: FR (occurrence: FR)
  Receive Date: 20250502
  Receipt Date: 20250502
  Transmission Date: 20250716
  Serious: No
  Sender: ALKEM
  Company Number: FR-ALKEM LABORATORIES LIMITED-FR-ALKEM-2025-02780

PATIENT
  Age: 9 Year
  Sex: Female

DRUGS (3)
  1. CAFFEINE [Suspect]
     Active Substance: CAFFEINE
     Indication: ADCY5-related dyskinesia
     Dosage: 2.5 MILLIGRAM/KILOGRAM, QD
     Route: 065
  2. CARBAMAZEPINE [Suspect]
     Active Substance: CARBAMAZEPINE
     Indication: ADCY5-related dyskinesia
     Route: 065
  3. DOPAMINE [Suspect]
     Active Substance: DOPAMINE HYDROCHLORIDE
     Indication: ADCY5-related dyskinesia
     Route: 065

REACTIONS (6)
  - Agitation [Unknown]
  - Diarrhoea [Unknown]
  - Sleep disorder [Unknown]
  - ADCY5-related dyskinesia [Unknown]
  - Condition aggravated [Unknown]
  - Drug ineffective [Unknown]
